FAERS Safety Report 9915058 (Version 1)
Quarter: 2014Q1

REPORT INFORMATION
  Report Type: Spontaneous
  Country: IT (occurrence: ES)
  Receive Date: 20140220
  Receipt Date: 20140220
  Transmission Date: 20141002
  Serious: Yes (Hospitalization)
  Sender: FDA-Public Use
  Company Number: ES-FRI-1000054409

PATIENT
  Age: 73 Year
  Sex: Male

DRUGS (6)
  1. NEBIVOLOL [Suspect]
     Indication: HYPERTENSION
     Dosage: 5 MG
     Route: 048
     Dates: start: 200804, end: 20110422
  2. SPIRONOLACTONE [Concomitant]
     Indication: HYPERTENSION
     Dosage: 25 MG
     Route: 048
     Dates: start: 2006
  3. ACETYLSALICYLIC ACID [Concomitant]
     Indication: ATRIOVENTRICULAR BLOCK
     Dosage: 150 MG
     Route: 048
     Dates: start: 2006
  4. ARTEDIL [Concomitant]
     Dosage: 20 MG
     Route: 048
     Dates: start: 200805
  5. CARDURAN NEO [Concomitant]
     Dosage: 8 MG
     Route: 048
     Dates: start: 200711
  6. VALS [Concomitant]
     Indication: HYPERTENSION
     Dosage: 320 MG
     Route: 048
     Dates: start: 200808

REACTIONS (2)
  - Atrioventricular block [Recovered/Resolved]
  - Cardiac failure [Recovered/Resolved]
